FAERS Safety Report 20929408 (Version 1)
Quarter: 2022Q2

REPORT INFORMATION
  Report Type: Spontaneous
  Country: US (occurrence: US)
  Receive Date: 20220608
  Receipt Date: 20220608
  Transmission Date: 20220720
  Serious: No
  Sender: FDA-Public Use
  Company Number: US-Ipsen Biopharmaceuticals, Inc.-2022-16168

PATIENT
  Age: 32 Year
  Sex: Female

DRUGS (1)
  1. SOMATULINE DEPOT [Suspect]
     Active Substance: LANREOTIDE ACETATE
     Indication: Acromegaly
     Dosage: 90 MG/0.3ML UNDER SKIN
     Route: 065
     Dates: start: 20220517

REACTIONS (3)
  - Diarrhoea [Recovered/Resolved]
  - Dizziness [Recovered/Resolved]
  - Unevaluable event [Unknown]

NARRATIVE: CASE EVENT DATE: 20220501
